FAERS Safety Report 7298503-8 (Version None)
Quarter: 2011Q1

REPORT INFORMATION
  Report Type: 
  Country: None (occurrence: None)
  Receive Date: 20110217
  Receipt Date: 20100826
  Transmission Date: 20110831
  Serious: Yes (Other)
  Sender: FDA-Public Use
  Company Number: GB-JNJFOC-20110204778

PATIENT
  Sex: Male

DRUGS (7)
  1. ASPIRIN [Concomitant]
     Indication: ILL-DEFINED DISORDER
     Route: 065
  2. MYCOPHENOLATE [Concomitant]
     Indication: ILL-DEFINED DISORDER
     Route: 065
  3. LANSOPRAZOLE [Concomitant]
     Indication: ILL-DEFINED DISORDER
     Route: 065
  4. HYDROXYZINE [Concomitant]
     Indication: ILL-DEFINED DISORDER
     Route: 065
  5. USTEKINUMAB [Suspect]
     Indication: PSORIASIS
     Route: 058
  6. ACETAMINOPHEN [Concomitant]
     Indication: ILL-DEFINED DISORDER
     Route: 065
  7. BENDROFLUAZIDE [Concomitant]
     Indication: ILL-DEFINED DISORDER
     Route: 065

REACTIONS (1)
  - HERPES ZOSTER [None]
